FAERS Safety Report 8861362 (Version 1)
Quarter: 2012Q4

REPORT INFORMATION
  Report Type: 
  Country: US (occurrence: US)
  Receive Date: 20121025
  Receipt Date: 20121025
  Transmission Date: 20130627
  Serious: No
  Sender: FDA-Public Use
  Company Number: US-AMGEN-USASP2012012898

PATIENT
  Age: 17 Year
  Sex: Female
  Weight: 45.35 kg

DRUGS (4)
  1. ENBREL [Suspect]
     Indication: PRODUCT USED FOR UNKNOWN INDICATION
     Dosage: 25 mg, 2 times/wk
     Route: 058
  2. VANCOCIN HCL [Concomitant]
     Dosage: 125 mg, UNK
  3. PREDNISONE [Concomitant]
     Dosage: 10 mg, UNK
  4. LIALDA [Concomitant]
     Dosage: 1.2 g, UNK

REACTIONS (2)
  - Injection site bruising [Unknown]
  - Oral infection [Unknown]
